FAERS Safety Report 5007248-6 (Version None)
Quarter: 2006Q2

REPORT INFORMATION
  Report Type: 
  Country: None (occurrence: None)
  Receive Date: 20060517
  Receipt Date: 20060501
  Transmission Date: 20061013
  Serious: Yes (Hospitalization)
  Sender: FDA-Public Use
  Company Number: US200605000386

PATIENT
  Age: 75 Year
  Sex: Female

DRUGS (4)
  1. FORTEO [Suspect]
     Indication: OSTEOPOROSIS
     Dates: end: 20060101
  2. FORTEO [Suspect]
     Indication: OSTEOPOROSIS
     Dates: start: 20060401
  3. FORTEO PEN (FORTEO PEN) [Concomitant]
  4. OXYCODONE (OXYCODONE) [Concomitant]

REACTIONS (5)
  - BACK INJURY [None]
  - INJECTION SITE HAEMORRHAGE [None]
  - NAUSEA [None]
  - PHARMACEUTICAL PRODUCT COMPLAINT [None]
  - SPINAL COLUMN STENOSIS [None]
